FAERS Safety Report 12607926 (Version 1)
Quarter: 2016Q3

REPORT INFORMATION
  Report Type: Spontaneous
  Country: US (occurrence: US)
  Receive Date: 20160729
  Receipt Date: 20160729
  Transmission Date: 20161109
  Serious: Yes (Other)
  Sender: FDA-Public Use
  Company Number: US-LPDUSPRD-20160656

PATIENT
  Age: 24 Year
  Sex: Female

DRUGS (5)
  1. SOLU-MEDROL [Concomitant]
     Active Substance: METHYLPREDNISOLONE SODIUM SUCCINATE
     Dosage: DOSE UNKNOWN
     Route: 065
  2. BENADRYL [Concomitant]
     Active Substance: DIPHENHYDRAMINE HYDROCHLORIDE
     Dosage: DOSE UNKNOWN
     Route: 065
  3. FAMOTIDINE. [Concomitant]
     Active Substance: FAMOTIDINE
     Dosage: DOSE UNKNOWN
     Route: 065
  4. SALINE [Concomitant]
     Active Substance: SODIUM CHLORIDE
     Dosage: 4 LITERS
     Route: 065
  5. EPINEPHRINE INJECTION, USP (1071-25) [Suspect]
     Active Substance: EPINEPHRINE
     Dosage: 0.3 MG (1:1000)
     Route: 030

REACTIONS (1)
  - Reversible cerebral vasoconstriction syndrome [Unknown]
